FAERS Safety Report 10023108 (Version 1)
Quarter: 2014Q1

REPORT INFORMATION
  Report Type: Spontaneous
  Country: JP (occurrence: JP)
  Receive Date: 20140320
  Receipt Date: 20140320
  Transmission Date: 20141002
  Serious: Yes (Other)
  Sender: FDA-Public Use
  Company Number: JP-009507513-1403JPN007999

PATIENT
  Age: 37 Year
  Sex: Female

DRUGS (3)
  1. ORGARAN INTRAVENOUS 1250 UNITS [Suspect]
     Indication: HABITUAL ABORTION
     Dosage: DAILY DOSE UNKNOWN
     Route: 058
  2. ASPIRIN [Concomitant]
     Indication: HABITUAL ABORTION
     Dosage: DAILY DOSE UNKNOWN, FORMULATION POR
     Route: 048
  3. HEPARIN [Concomitant]
     Indication: HABITUAL ABORTION
     Dosage: DAILY DOSAGE UNKNOWN
     Route: 058

REACTIONS (2)
  - Abortion [Unknown]
  - Maternal exposure during pregnancy [Recovered/Resolved]
